FAERS Safety Report 8225812-8 (Version None)
Quarter: 2012Q1

REPORT INFORMATION
  Report Type: 
  Country: None (occurrence: None)
  Receive Date: 20120321
  Receipt Date: 20120307
  Transmission Date: 20120608
  Serious: Yes (Hospitalization)
  Sender: FDA-Public Use
  Company Number: US-SPECTRUM PHARMACEUTICALS, INC.-12-F-US-00048

PATIENT

DRUGS (1)
  1. FUSILEV [Suspect]
     Indication: COLORECTAL CANCER
     Dosage: ONE SINGLE DOSE
     Route: 042
     Dates: start: 20120306, end: 20120306

REACTIONS (3)
  - CHILLS [None]
  - WHITE BLOOD CELL COUNT DECREASED [None]
  - HYPERHIDROSIS [None]
